FAERS Safety Report 7215541-1 (Version None)
Quarter: 2011Q1

REPORT INFORMATION
  Report Type: 
  Country: None (occurrence: None)
  Receive Date: 20110107
  Receipt Date: 20110104
  Transmission Date: 20110831
  Serious: Yes (Hospitalization)
  Sender: FDA-Public Use
  Company Number: SE-ROCHE-743868

PATIENT
  Sex: Male
  Weight: 68 kg

DRUGS (10)
  1. COZAAR [Concomitant]
  2. CISPLATIN [Suspect]
     Indication: NON-SMALL CELL LUNG CANCER
     Route: 042
     Dates: start: 20101027
  3. OXYCONTIN [Concomitant]
     Dates: start: 20101014
  4. PEMETREXED [Suspect]
     Indication: NON-SMALL CELL LUNG CANCER
     Route: 042
     Dates: start: 20101027
  5. DEXAMETHASONE [Concomitant]
     Dates: start: 20101026
  6. AMLODIPINE [Concomitant]
  7. BEVACIZUMAB [Suspect]
     Indication: NON-SMALL CELL LUNG CANCER
     Route: 042
     Dates: start: 20101027
  8. VITAMIN B-12 [Concomitant]
     Dates: start: 20101019
  9. FOLIC ACID [Concomitant]
     Dates: start: 20101019
  10. MOVICOL [Concomitant]

REACTIONS (1)
  - TRANSIENT GLOBAL AMNESIA [None]
